FAERS Safety Report 6474346-X (Version None)
Quarter: 2009Q4

REPORT INFORMATION
  Report Type: 
  Country: None (occurrence: None)
  Receive Date: 20091204
  Receipt Date: 20091124
  Transmission Date: 20100525
  Serious: Yes (Disabling)
  Sender: FDA-Public Use
  Company Number: US-ELI_LILLY_AND_COMPANY-US200911006352

PATIENT
  Age: 95 Year
  Sex: Female

DRUGS (9)
  1. FORTEO [Suspect]
     Indication: OSTEOPOROSIS
     Dosage: 20 UG, DAILY (1/D)
     Dates: start: 20090109, end: 20091119
  2. CALCIUM                                 /N/A/ [Concomitant]
  3. LANOXIN [Concomitant]
  4. POTASSIUM [Concomitant]
  5. FISH OIL [Concomitant]
  6. GINKGO [Concomitant]
  7. FOSFREE [Concomitant]
  8. CALCIUM [Concomitant]
     Dosage: 1200 UNK, DAILY (1/D)
  9. LAXATIVES [Concomitant]
     Dosage: UNK, DAILY (1/D)

REACTIONS (13)
  - ARTHRALGIA [None]
  - ARTHROPATHY [None]
  - ASTHENIA [None]
  - BLOOD PRESSURE INCREASED [None]
  - FATIGUE [None]
  - GAIT DISTURBANCE [None]
  - MUSCLE DISORDER [None]
  - MUSCULOSKELETAL PAIN [None]
  - NECK PAIN [None]
  - POSTURE ABNORMAL [None]
  - TENSION [None]
  - TREMOR [None]
  - VITAMIN D DECREASED [None]
